FAERS Safety Report 24412578 (Version 1)
Quarter: 2024Q4

REPORT INFORMATION
  Report Type: Spontaneous
  Country: US (occurrence: None)
  Receive Date: 20241007
  Receipt Date: 20241007
  Transmission Date: 20250115
  Serious: Yes (Hospitalization, Disabling)
  Sender: Public
  Company Number: None

PATIENT

DRUGS (1)
  1. OZEMPIC [Suspect]
     Active Substance: SEMAGLUTIDE

REACTIONS (4)
  - Nausea [None]
  - Diarrhoea [None]
  - Product label confusion [None]
  - Visual impairment [None]

NARRATIVE: CASE EVENT DATE: 20230701
